FAERS Safety Report 7632422-X (Version None)
Quarter: 2011Q3

REPORT INFORMATION
  Report Type: 
  Country: None (occurrence: None)
  Receive Date: 20110725
  Receipt Date: 20100901
  Transmission Date: 20111222
  Serious: Yes (Other)
  Sender: FDA-Public Use
  Company Number: US-BRISTOL-MYERS SQUIBB COMPANY-15266471

PATIENT
  Age: 63 Year
  Sex: Female
  Weight: 66 kg

DRUGS (7)
  1. COUMADIN [Suspect]
     Dosage: 6MG 3 WEEKS AGO THEN INCREASED TO 7.5MG
     Dates: start: 20100401
  2. ZOCOR [Concomitant]
  3. PLAVIX [Concomitant]
  4. ISO-BID [Concomitant]
  5. TOPROL-XL [Concomitant]
  6. CHANTIX [Concomitant]
  7. RESTORIL [Concomitant]

REACTIONS (3)
  - INTERNATIONAL NORMALISED RATIO INCREASED [None]
  - DIZZINESS [None]
  - HEADACHE [None]
